FAERS Safety Report 24950811 (Version 1)
Quarter: 2025Q1

REPORT INFORMATION
  Report Type: Spontaneous
  Country: US (occurrence: None)
  Receive Date: 20250207
  Receipt Date: 20250207
  Transmission Date: 20250409
  Serious: Yes (Hospitalization)
  Sender: FDA-CTU
  Company Number: None

PATIENT
  Age: 71 Year
  Sex: Male

DRUGS (2)
  1. TEMOZOLOMIDE [Suspect]
     Active Substance: TEMOZOLOMIDE
     Dosage: FREQUENCY : DAILY;?
     Route: 048
     Dates: start: 20241211, end: 20241227
  2. TEMOZOLOMIDE [Concomitant]
     Active Substance: TEMOZOLOMIDE
     Dates: start: 20241211, end: 20241227

REACTIONS (2)
  - Rash [None]
  - Pancytopenia [None]
